FAERS Safety Report 23237374 (Version 1)
Quarter: 2023Q4

REPORT INFORMATION
  Report Type: Spontaneous
  Country: US (occurrence: US)
  Receive Date: 20231128
  Receipt Date: 20231128
  Transmission Date: 20240110
  Serious: Yes (Hospitalization)
  Sender: FDA-Public Use
  Company Number: US-SUNOVION-2023SUN001264

PATIENT

DRUGS (10)
  1. LATUDA [Suspect]
     Active Substance: LURASIDONE HYDROCHLORIDE
     Indication: Schizoaffective disorder bipolar type
     Dosage: 60 MG
     Route: 048
  2. LATUDA [Suspect]
     Active Substance: LURASIDONE HYDROCHLORIDE
     Indication: Anxiety
     Dosage: 60 MG, BID (ONE IN THE MORNING AND ONE AT NIGHT)
     Route: 048
  3. LATUDA [Suspect]
     Active Substance: LURASIDONE HYDROCHLORIDE
     Indication: Insomnia
     Dosage: 120 MG
     Route: 048
  4. OLANZAPINE [Suspect]
     Active Substance: OLANZAPINE
     Indication: Anxiety
     Dosage: UNK
     Route: 065
  5. OLANZAPINE [Suspect]
     Active Substance: OLANZAPINE
     Indication: Insomnia
     Dosage: 10 MG
     Route: 065
  6. OLANZAPINE [Suspect]
     Active Substance: OLANZAPINE
     Dosage: 15 MG
     Route: 065
  7. ABILIFY [Suspect]
     Active Substance: ARIPIPRAZOLE
     Dosage: 5 MG
     Route: 065
  8. ABILIFY [Suspect]
     Active Substance: ARIPIPRAZOLE
     Dosage: 10 MG
     Route: 065
  9. ABILIFY [Suspect]
     Active Substance: ARIPIPRAZOLE
     Dosage: 5 MG
     Route: 065
  10. HYDROXYZINE PAMOATE [Suspect]
     Active Substance: HYDROXYZINE PAMOATE
     Dosage: 50 MG
     Route: 065

REACTIONS (10)
  - Insomnia [Not Recovered/Not Resolved]
  - Condition aggravated [Unknown]
  - Aggression [Not Recovered/Not Resolved]
  - Nervousness [Not Recovered/Not Resolved]
  - Emotional disorder [Not Recovered/Not Resolved]
  - Fear [Not Recovered/Not Resolved]
  - Increased appetite [Unknown]
  - Weight increased [Unknown]
  - Anxiety [Not Recovered/Not Resolved]
  - Off label use [Unknown]
